FAERS Safety Report 19181730 (Version 2)
Quarter: 2021Q2

REPORT INFORMATION
  Report Type: Spontaneous
  Country: NL (occurrence: NL)
  Receive Date: 20210426
  Receipt Date: 20210504
  Transmission Date: 20210717
  Serious: Yes (Life-Threatening, Hospitalization, Other)
  Sender: FDA-Public Use
  Company Number: NVSC2021NL092950

PATIENT
  Age: 23 Year
  Sex: Male

DRUGS (1)
  1. MIDOSTAURIN [Suspect]
     Active Substance: MIDOSTAURIN
     Indication: PRODUCT USED FOR UNKNOWN INDICATION
     Dosage: 50 MG
     Route: 065
     Dates: start: 20210105, end: 20210117

REACTIONS (4)
  - Malaise [Not Recovered/Not Resolved]
  - Epilepsy [Unknown]
  - Pyrexia [Not Recovered/Not Resolved]
  - Septic shock [Not Recovered/Not Resolved]

NARRATIVE: CASE EVENT DATE: 20210422
